FAERS Safety Report 13571246 (Version 2)
Quarter: 2017Q2

REPORT INFORMATION
  Report Type: Spontaneous
  Country: AR (occurrence: AR)
  Receive Date: 20170523
  Receipt Date: 20170622
  Transmission Date: 20170830
  Serious: Yes (Life-Threatening, Hospitalization, Other)
  Sender: FDA-Public Use
  Company Number: AR-ABBVIE-17K-007-1949265-00

PATIENT
  Sex: Female

DRUGS (1)
  1. HUMIRA [Suspect]
     Active Substance: ADALIMUMAB
     Indication: PSORIASIS
     Route: 058

REACTIONS (6)
  - Interstitial lung disease [Unknown]
  - Renal impairment [Unknown]
  - Lymph node tuberculosis [Recovering/Resolving]
  - Lupus-like syndrome [Unknown]
  - Pneumonia [Unknown]
  - Respiratory tract infection [Unknown]
